FAERS Safety Report 10381921 (Version 2)
Quarter: 2014Q3

REPORT INFORMATION
  Report Type: Report from Study
  Country: JP (occurrence: JP)
  Receive Date: 20140813
  Receipt Date: 20140905
  Transmission Date: 20150326
  Serious: Yes (Other)
  Sender: FDA-Public Use
  Company Number: JP-GILEAD-2014-0111841

PATIENT
  Sex: Male

DRUGS (10)
  1. VALIXA [Concomitant]
     Active Substance: VALGANCICLOVIR
     Route: 048
     Dates: start: 20100329, end: 20100426
  2. EMTRICITABINE/TENOFOVIR DISOPROXIL FUMARATE [Suspect]
     Active Substance: EMTRICITABINE\TENOFOVIR DISOPROXIL
     Indication: HIV INFECTION
     Dosage: UNK
     Route: 048
     Dates: start: 2010
  3. VALIXA [Concomitant]
     Active Substance: VALGANCICLOVIR
     Route: 048
     Dates: start: 20100427, end: 20110509
  4. ITRIZOLE [Concomitant]
     Active Substance: ITRACONAZOLE
     Indication: ORAL CANDIDIASIS
     Route: 048
     Dates: start: 20100524, end: 20110509
  5. ISENTRESS [Suspect]
     Active Substance: RALTEGRAVIR POTASSIUM
     Indication: HIV INFECTION
     Route: 048
     Dates: start: 20100223
  6. ZITHROMAC [Concomitant]
     Active Substance: AZITHROMYCIN DIHYDRATE
     Indication: OPPORTUNISTIC INFECTION PROPHYLAXIS
     Route: 048
     Dates: start: 20100119, end: 20100812
  7. FLUCONAZOLE. [Concomitant]
     Active Substance: FLUCONAZOLE
     Indication: ORAL CANDIDIASIS
     Route: 048
     Dates: start: 20100119, end: 20100523
  8. VALIXA [Concomitant]
     Active Substance: VALGANCICLOVIR
     Route: 048
     Dates: start: 20100310, end: 20100328
  9. MICARDIS [Concomitant]
     Active Substance: TELMISARTAN
     Indication: HYPERTENSION
     Route: 048
     Dates: start: 20120703
  10. VALIXA [Concomitant]
     Active Substance: VALGANCICLOVIR
     Indication: CYTOMEGALOVIRUS INFECTION
     Route: 048
     Dates: start: 20100126, end: 20100309

REACTIONS (1)
  - Cytomegalovirus chorioretinitis [Unknown]

NARRATIVE: CASE EVENT DATE: 20100112
